FAERS Safety Report 7380562-5 (Version None)
Quarter: 2011Q1

REPORT INFORMATION
  Report Type: 
  Country: None (occurrence: None)
  Receive Date: 20110325
  Receipt Date: 20110325
  Transmission Date: 20110831
  Serious: Yes (Other)
  Sender: FDA-Public Use
  Company Number: None

PATIENT
  Age: 64 Year
  Sex: Female
  Weight: 59.1 kg

DRUGS (1)
  1. NEXIUM [Suspect]
     Dosage: 40MG DAILY ORAL
     Route: 048
     Dates: start: 20110228, end: 20110309

REACTIONS (1)
  - BLOOD PRESSURE INCREASED [None]
